FAERS Safety Report 13765269 (Version 1)
Quarter: 2017Q3

REPORT INFORMATION
  Report Type: Spontaneous
  Country: GB (occurrence: GB)
  Receive Date: 20170718
  Receipt Date: 20170718
  Transmission Date: 20171127
  Serious: Yes (Other)
  Sender: FDA-Public Use
  Company Number: GB-ASTRAZENECA-2017SE55244

PATIENT
  Age: 57 Year
  Sex: Female

DRUGS (3)
  1. TAMOXIFEN [Suspect]
     Active Substance: TAMOXIFEN
     Dosage: TEVA
     Route: 048
  2. ARIMIDEX [Suspect]
     Active Substance: ANASTROZOLE
     Route: 048
  3. TAMOXIFEN [Suspect]
     Active Substance: TAMOXIFEN
     Dosage: 20MG
     Route: 048

REACTIONS (12)
  - Malaise [Unknown]
  - Liver function test abnormal [Unknown]
  - Nausea [Unknown]
  - Decreased appetite [Unknown]
  - Pain [Unknown]
  - Loss of personal independence in daily activities [Unknown]
  - Product size issue [Unknown]
  - Dizziness [Unknown]
  - Abdominal discomfort [Unknown]
  - Muscle spasms [Unknown]
  - Fatigue [Unknown]
  - Confusional state [Unknown]

NARRATIVE: CASE EVENT DATE: 201705
